FAERS Safety Report 16234063 (Version 1)
Quarter: 2019Q2

REPORT INFORMATION
  Report Type: Spontaneous
  Country: US (occurrence: US)
  Receive Date: 20190320
  Receipt Date: 20190320
  Transmission Date: 20190711
  Serious: No
  Sender: FDA-Public Use
  Company Number: None

PATIENT
  Age: 50 Year
  Sex: Male

DRUGS (1)
  1. ENTECAVIR 0.5 MG TABS, [Suspect]
     Active Substance: ENTECAVIR
     Indication: HEPATITIS B
     Route: 048
     Dates: start: 201806

REACTIONS (1)
  - Gastroenteritis viral [None]
